FAERS Safety Report 12609625 (Version 2)
Quarter: 2019Q1

REPORT INFORMATION
  Report Type: Report from Study
  Country: DE (occurrence: DE)
  Receive Date: 20160801
  Receipt Date: 20190327
  Transmission Date: 20190417
  Serious: Yes (Hospitalization)
  Sender: FDA-Public Use
  Company Number: DE-ROCHE-1802123

PATIENT
  Age: 43 Year
  Sex: Male

DRUGS (31)
  1. RITUXIMAB. [Suspect]
     Active Substance: RITUXIMAB
     Dosage: CYCLE6
     Route: 065
     Dates: start: 20091119, end: 20091120
  2. CYCLOPHOSPHAMIDE. [Suspect]
     Active Substance: CYCLOPHOSPHAMIDE
     Dosage: CYCLE 3
     Route: 065
     Dates: start: 20090917, end: 20090922
  3. PREDNISOLONE. [Suspect]
     Active Substance: PREDNISOLONE
     Dosage: CYCLE 5
     Route: 065
     Dates: start: 20091029, end: 20091030
  4. DOXORUBICIN [Suspect]
     Active Substance: DOXORUBICIN
     Dosage: CYCLE 3
     Route: 065
     Dates: start: 20090917, end: 20090922
  5. RITUXIMAB. [Suspect]
     Active Substance: RITUXIMAB
     Dosage: CYCLE3
     Route: 065
     Dates: start: 20090917, end: 20090922
  6. RITUXIMAB. [Suspect]
     Active Substance: RITUXIMAB
     Dosage: CYCLE4
     Route: 065
     Dates: start: 20091009, end: 20091014
  7. DEXAMETHASONE. [Suspect]
     Active Substance: DEXAMETHASONE
     Indication: MALIGNANT LYMPHOID NEOPLASM
     Route: 065
     Dates: start: 20091130
  8. DOXORUBICIN [Suspect]
     Active Substance: DOXORUBICIN
     Dosage: CYCLE 6
     Route: 065
     Dates: start: 20091119, end: 20091120
  9. RITUXIMAB. [Suspect]
     Active Substance: RITUXIMAB
     Dosage: CYCLE5
     Route: 065
     Dates: start: 20091029, end: 20091030
  10. CYCLOPHOSPHAMIDE. [Suspect]
     Active Substance: CYCLOPHOSPHAMIDE
     Indication: MALIGNANT LYMPHOID NEOPLASM
     Dosage: CYCLE 1
     Route: 065
     Dates: start: 20090801, end: 20090806
  11. CYCLOPHOSPHAMIDE. [Suspect]
     Active Substance: CYCLOPHOSPHAMIDE
     Dosage: CYCLE 4
     Route: 065
     Dates: start: 20091009, end: 20091014
  12. PREDNISOLONE. [Suspect]
     Active Substance: PREDNISOLONE
     Indication: MALIGNANT LYMPHOID NEOPLASM
     Dosage: CYCLE 1
     Route: 065
     Dates: start: 20090801, end: 20090806
  13. PREDNISOLONE. [Suspect]
     Active Substance: PREDNISOLONE
     Dosage: CYCLE 4
     Route: 065
     Dates: start: 20091009, end: 20091014
  14. VINCRISTINE [Suspect]
     Active Substance: VINCRISTINE
     Indication: MALIGNANT LYMPHOID NEOPLASM
     Dosage: CYCLE 1
     Route: 065
     Dates: start: 20090801, end: 20090806
  15. DOXORUBICIN [Suspect]
     Active Substance: DOXORUBICIN
     Dosage: CYCLE 2
     Route: 065
     Dates: start: 20090824, end: 20090829
  16. RITUXIMAB. [Suspect]
     Active Substance: RITUXIMAB
     Indication: MALIGNANT LYMPHOID NEOPLASM
     Dosage: CYCLE1
     Route: 065
     Dates: start: 20090801, end: 20090806
  17. CYTARABINE. [Suspect]
     Active Substance: CYTARABINE
     Indication: MALIGNANT LYMPHOID NEOPLASM
     Route: 065
     Dates: start: 20091130
  18. PREDNISOLONE. [Suspect]
     Active Substance: PREDNISOLONE
     Dosage: CYCLE 3
     Route: 065
     Dates: start: 20090917, end: 20090922
  19. CARMUSTINE. [Suspect]
     Active Substance: CARMUSTINE
     Indication: MALIGNANT LYMPHOID NEOPLASM
     Route: 065
     Dates: start: 20091130
  20. MELPHALAN. [Suspect]
     Active Substance: MELPHALAN
     Indication: MALIGNANT LYMPHOID NEOPLASM
     Route: 065
     Dates: start: 20091130
  21. PREDNISOLONE. [Suspect]
     Active Substance: PREDNISOLONE
     Dosage: CYCLE 2
     Route: 065
     Dates: start: 20090824, end: 20090829
  22. CYCLOPHOSPHAMIDE. [Suspect]
     Active Substance: CYCLOPHOSPHAMIDE
     Dosage: CYCLE 2
     Route: 065
     Dates: start: 20090824, end: 20090829
  23. PREDNISOLONE. [Suspect]
     Active Substance: PREDNISOLONE
     Dosage: CYCLE 6
     Route: 065
     Dates: start: 20091119, end: 20091120
  24. RITUXIMAB. [Suspect]
     Active Substance: RITUXIMAB
     Dosage: CYCLE2
     Route: 065
     Dates: start: 20090824, end: 20090829
  25. CYCLOPHOSPHAMIDE. [Suspect]
     Active Substance: CYCLOPHOSPHAMIDE
     Dosage: CYCLE 6
     Route: 065
     Dates: start: 20091119, end: 20091120
  26. DOXORUBICIN [Suspect]
     Active Substance: DOXORUBICIN
     Indication: MALIGNANT LYMPHOID NEOPLASM
     Dosage: CYCLE 1
     Route: 065
     Dates: start: 20090801, end: 20090806
  27. DOXORUBICIN [Suspect]
     Active Substance: DOXORUBICIN
     Dosage: CYCLE 5
     Route: 065
     Dates: start: 20091029, end: 20091030
  28. ETOPOSIDE. [Suspect]
     Active Substance: ETOPOSIDE
     Indication: MALIGNANT LYMPHOID NEOPLASM
     Route: 065
     Dates: start: 20091130
  29. CYCLOPHOSPHAMIDE. [Suspect]
     Active Substance: CYCLOPHOSPHAMIDE
     Dosage: CYCLE 5
     Route: 065
     Dates: start: 20091029, end: 20091030
  30. VINCRISTINE [Suspect]
     Active Substance: VINCRISTINE
     Dosage: CYCLE 2
     Route: 065
     Dates: start: 20090824, end: 20090829
  31. DOXORUBICIN [Suspect]
     Active Substance: DOXORUBICIN
     Dosage: CYCLE 4
     Route: 065
     Dates: start: 20091009, end: 20091014

REACTIONS (7)
  - Fungal disease carrier [Recovered/Resolved]
  - Bacterial sepsis [Recovered/Resolved]
  - Intestinal resection [Recovered/Resolved]
  - Gastrointestinal toxicity [Recovered/Resolved]
  - Small intestinal resection [Recovered/Resolved]
  - Necrosis [Recovered/Resolved]
  - Ileus paralytic [Recovered/Resolved]

NARRATIVE: CASE EVENT DATE: 20091130
